FAERS Safety Report 8770063 (Version 6)
Quarter: 2013Q1

REPORT INFORMATION
  Report Type: Report from Study
  Country: US (occurrence: US)
  Receive Date: 20120906
  Receipt Date: 20130326
  Transmission Date: 20140127
  Serious: Yes (Other)
  Sender: FDA-Public Use
  Company Number: US-US-EMD SERONO, INC.-7158393

PATIENT
  Age: 59 Year
  Sex: Female
  Weight: 54 kg

DRUGS (5)
  1. REBIF [Suspect]
     Indication: MULTIPLE SCLEROSIS
     Route: 058
     Dates: start: 20061222
  2. PROVIGIL [Concomitant]
     Indication: FATIGUE
  3. AMPYRA [Concomitant]
     Indication: GAIT DISTURBANCE
  4. FOSAMAX [Concomitant]
     Indication: PRODUCT USED FOR UNKNOWN INDICATION
  5. FLONASE [Concomitant]
     Indication: PRODUCT USED FOR UNKNOWN INDICATION

REACTIONS (6)
  - Osteotomy [Recovering/Resolving]
  - Bunion operation [Recovering/Resolving]
  - Toe operation [Recovering/Resolving]
  - Sciatica [Not Recovered/Not Resolved]
  - Joint contracture [Unknown]
  - Gait disturbance [Unknown]
